FAERS Safety Report 9358877 (Version 2)
Quarter: 2013Q2

REPORT INFORMATION
  Report Type: Report from Study
  Country: US (occurrence: US)
  Receive Date: 20130620
  Receipt Date: 20130628
  Transmission Date: 20140414
  Serious: Yes (Death, Hospitalization, Other)
  Sender: FDA-Public Use
  Company Number: US-ACTELION-A-US2012-65797

PATIENT
  Age: 79 Year
  Sex: Female

DRUGS (15)
  1. TRACLEER [Suspect]
     Indication: PULMONARY ARTERIAL HYPERTENSION
     Dosage: 125 MG, BID
     Route: 048
     Dates: start: 20100824, end: 20130524
  2. SILDENAFIL [Concomitant]
  3. COUMADIN [Concomitant]
  4. ALBUTEROL [Concomitant]
  5. LIPITOR [Concomitant]
  6. LEXAPRO [Concomitant]
  7. CARDIZEM [Concomitant]
  8. ADVAIR [Concomitant]
  9. FLUTICASONE [Concomitant]
  10. MUCINEX [Concomitant]
  11. XOPENEX [Concomitant]
  12. PROVIGIL [Concomitant]
  13. PRILOSEC [Concomitant]
  14. MIRALAX [Concomitant]
  15. K-DUR [Concomitant]

REACTIONS (6)
  - Death [Fatal]
  - Chronic obstructive pulmonary disease [Recovering/Resolving]
  - Acute respiratory failure [Recovering/Resolving]
  - Hypoxia [Recovering/Resolving]
  - Atrial fibrillation [Recovering/Resolving]
  - Dyspnoea [Recovering/Resolving]
